FAERS Safety Report 9500478 (Version 1)
Quarter: 2013Q3

REPORT INFORMATION
  Report Type: Spontaneous
  Country: US (occurrence: US)
  Receive Date: 20130905
  Receipt Date: 20130905
  Transmission Date: 20140515
  Serious: Yes (Other)
  Sender: FDA-Public Use
  Company Number: US-BAYER-2013-105998

PATIENT
  Age: 24 Year
  Sex: Female
  Weight: 94.79 kg

DRUGS (6)
  1. YASMIN [Suspect]
  2. ALBUTEROL [Concomitant]
  3. IBUPROFEN [Concomitant]
     Dosage: 600-800 MG
     Dates: start: 20101229
  4. IBUPROFEN [Concomitant]
     Dosage: 600-800 MG
     Dates: start: 20110131
  5. LEVORA [Concomitant]
  6. MOTRIN [Concomitant]

REACTIONS (1)
  - Deep vein thrombosis [None]
